FAERS Safety Report 16007028 (Version 2)
Quarter: 2019Q1

REPORT INFORMATION
  Report Type: Spontaneous
  Country: GB (occurrence: GB)
  Receive Date: 20190226
  Receipt Date: 20190305
  Transmission Date: 20190418
  Serious: Yes (Hospitalization, Other)
  Sender: FDA-Public Use
  Company Number: PHHY2019GB041338

PATIENT
  Age: 69 Year
  Sex: Female

DRUGS (32)
  1. METOCLOPRAMIDE. [Concomitant]
     Active Substance: METOCLOPRAMIDE
     Indication: PROPHYLAXIS
     Dosage: 10 MG, UNK
     Route: 048
  2. CLOPIDOGREL [Concomitant]
     Active Substance: CLOPIDOGREL BISULFATE
     Indication: PRODUCT USED FOR UNKNOWN INDICATION
     Dosage: UNK
     Route: 048
  3. CETIRIZINE [Concomitant]
     Active Substance: CETIRIZINE HYDROCHLORIDE
     Indication: PROPHYLAXIS
     Dosage: 10 MG, UNK (1 TABLET AT NIGHT FOR 3 DAYS)
     Route: 048
  4. PACLITAXEL. [Suspect]
     Active Substance: PACLITAXEL
     Indication: PRODUCT USED FOR UNKNOWN INDICATION
     Dosage: 138 MG, Q4W
     Route: 042
     Dates: start: 20151203, end: 20160203
  5. PACLITAXEL. [Suspect]
     Active Substance: PACLITAXEL
     Dosage: 68 MG, QW
     Route: 042
     Dates: start: 20160303
  6. DOCETAXEL. [Suspect]
     Active Substance: DOCETAXEL
     Indication: BREAST CANCER METASTATIC
     Dosage: 124 MG, Q3W
     Route: 042
     Dates: start: 20151106, end: 20151106
  7. TRASTUZUMAB. [Suspect]
     Active Substance: TRASTUZUMAB
     Indication: BREAST CANCER METASTATIC
     Dosage: 450 MG, UNK (LOADING DOSE)
     Route: 042
     Dates: start: 20151105, end: 20151105
  8. DEXAMETHASONE. [Concomitant]
     Active Substance: DEXAMETHASONE
     Indication: PROPHYLAXIS
     Dosage: 8 MG, UNK
     Route: 048
  9. RANITIDINE. [Concomitant]
     Active Substance: RANITIDINE
     Indication: PROPHYLAXIS
     Dosage: 150 MG, UNK (1 TABLET TWICE A DAY FOR 3 DAYS)
     Route: 048
  10. PACLITAXEL. [Suspect]
     Active Substance: PACLITAXEL
     Dosage: 139 MG, Q4W
     Route: 042
     Dates: start: 20151210
  11. PACLITAXEL. [Suspect]
     Active Substance: PACLITAXEL
     Dosage: 68 MG, QW
     Route: 042
     Dates: start: 20160310
  12. LORATADINE. [Concomitant]
     Active Substance: LORATADINE
     Dosage: UNK
     Route: 065
     Dates: start: 20151119, end: 20151217
  13. ACETYLSALICYLIC ACID [Concomitant]
     Active Substance: ASPIRIN
     Dosage: 75 MG, QD
     Route: 048
     Dates: start: 20170701
  14. PERTUZUMAB. [Suspect]
     Active Substance: PERTUZUMAB
     Dosage: 420 MG, QW (MAINTENANCE DOSE)
     Route: 042
     Dates: start: 20151203
  15. ATORVASTATIN [Concomitant]
     Active Substance: ATORVASTATIN
     Indication: PRODUCT USED FOR UNKNOWN INDICATION
     Dosage: 40 MG, QD
     Route: 048
     Dates: start: 20170701
  16. LOPERAMIDE [Concomitant]
     Active Substance: LOPERAMIDE
     Dosage: UNK
     Route: 065
     Dates: start: 20151119, end: 20151217
  17. LANSOPRAZOLE. [Concomitant]
     Active Substance: LANSOPRAZOLE
     Indication: PRODUCT USED FOR UNKNOWN INDICATION
     Dosage: 30 MG, QD
     Route: 048
     Dates: start: 20170312
  18. CHLORHEXIDINE GLUCONATE. [Concomitant]
     Active Substance: CHLORHEXIDINE GLUCONATE
     Indication: PROPHYLAXIS
     Dosage: 4 DF, QD
     Route: 048
     Dates: start: 20151105
  19. TRIMETHOPRIM. [Concomitant]
     Active Substance: TRIMETHOPRIM
     Indication: URINARY TRACT INFECTION
     Dosage: 400 MG, UNK
     Route: 048
     Dates: start: 20151210
  20. TRIMETHOPRIM. [Concomitant]
     Active Substance: TRIMETHOPRIM
     Dosage: 200 MG, QD
     Route: 048
  21. PERTUZUMAB. [Suspect]
     Active Substance: PERTUZUMAB
     Indication: BREAST CANCER METASTATIC
     Dosage: 840 MG, UNK (LOADING DOSE)
     Route: 042
     Dates: start: 20151105, end: 20151105
  22. LOPERAMIDE [Concomitant]
     Active Substance: LOPERAMIDE
     Indication: PROPHYLAXIS
     Dosage: 2 MG, BID (4 TABLET TWICE A DAY FOR 3 DAYS)
     Route: 048
  23. RAMIPRIL. [Concomitant]
     Active Substance: RAMIPRIL
     Indication: PRODUCT USED FOR UNKNOWN INDICATION
     Dosage: 2.5 MG, QD
     Route: 048
     Dates: start: 20170523
  24. CHLORHEXIDINE GLUCONATE. [Concomitant]
     Active Substance: CHLORHEXIDINE GLUCONATE
     Dosage: MOUTHWASH
     Route: 048
     Dates: start: 20151105
  25. LORATADINE. [Concomitant]
     Active Substance: LORATADINE
     Indication: PRODUCT USED FOR UNKNOWN INDICATION
     Dosage: UNK
     Route: 048
  26. ACETYLSALICYLIC ACID [Concomitant]
     Active Substance: ASPIRIN
     Indication: PRODUCT USED FOR UNKNOWN INDICATION
     Dosage: 75 MG, QD
     Route: 048
     Dates: start: 20170523
  27. PACLITAXEL. [Suspect]
     Active Substance: PACLITAXEL
     Dosage: 102 MG, Q4W
     Route: 042
     Dates: start: 20160204, end: 20160218
  28. HERCEPTIN [Suspect]
     Active Substance: TRASTUZUMAB
     Indication: BREAST CANCER METASTATIC
     Dosage: 450 MG, UNK TOTAL (LOADING DOSE)
     Route: 042
     Dates: start: 20151105, end: 20151105
  29. HERCEPTIN [Suspect]
     Active Substance: TRASTUZUMAB
     Dosage: 350 MG, Q3W (MAINTENANCE DOSE)
     Route: 042
     Dates: start: 20151203
  30. TRASTUZUMAB. [Suspect]
     Active Substance: TRASTUZUMAB
     Dosage: 350 MG, UNK (MAINTENANCE DOSE)
     Route: 042
     Dates: start: 20151203
  31. TRAMADOL HYDROCHLORIDE. [Concomitant]
     Active Substance: TRAMADOL HYDROCHLORIDE
     Indication: PROPHYLAXIS
     Dosage: 50 MG, UNK
     Route: 048
  32. LOPERAMIDE [Concomitant]
     Active Substance: LOPERAMIDE
     Dosage: 4 TABLET TWICE A DAY FOR 3 DAYS
     Route: 048

REACTIONS (23)
  - Dysuria [Recovered/Resolved]
  - Cystitis noninfective [Recovered/Resolved]
  - Neuropathy peripheral [Recovered/Resolved]
  - Mucosal inflammation [Recovered/Resolved]
  - Diarrhoea [Recovered/Resolved]
  - Rash [Recovered/Resolved]
  - Urosepsis [Recovered/Resolved]
  - Anaphylactic reaction [Recovered/Resolved]
  - Dyspnoea [Recovered/Resolved]
  - Palmar erythema [Not Recovered/Not Resolved]
  - Escherichia test positive [Not Recovered/Not Resolved]
  - Hypersensitivity [Recovered/Resolved]
  - Bacterial test positive [Recovered/Resolved]
  - Urinary tract infection [Recovered/Resolved]
  - Malaise [Recovered/Resolved]
  - Defaecation urgency [Not Recovered/Not Resolved]
  - Chest discomfort [Recovered/Resolved]
  - Fatigue [Not Recovered/Not Resolved]
  - Tendonitis [Not Recovered/Not Resolved]
  - Tremor [Recovered/Resolved]
  - Neuropathy peripheral [Recovered/Resolved]
  - Hypertension [Recovered/Resolved]
  - Erythema [Recovered/Resolved]

NARRATIVE: CASE EVENT DATE: 201512
